FAERS Safety Report 5105735-3 (Version None)
Quarter: 2006Q3

REPORT INFORMATION
  Report Type: 
  Country: None (occurrence: None)
  Receive Date: 20060915
  Receipt Date: 20060720
  Transmission Date: 20061208
  Serious: Yes (Other)
  Sender: FDA-Public Use
  Company Number: 2006UW14878

PATIENT
  Sex: Male
  Weight: 90.9 kg

DRUGS (7)
  1. CRESTOR [Suspect]
     Indication: HYPERCHOLESTEROLAEMIA
     Route: 048
     Dates: start: 20060524, end: 20060615
  2. ATENOLOL [Concomitant]
     Route: 048
  3. PLAVIX [Concomitant]
  4. NIASPAN [Concomitant]
  5. ALTACE [Concomitant]
  6. FOLTX [Concomitant]
  7. HYDROCHLOROTHIAZIDE [Concomitant]

REACTIONS (2)
  - HYPERTHYROIDISM [None]
  - SINUS TACHYCARDIA [None]
